FAERS Safety Report 8349984-X (Version None)
Quarter: 2012Q2

REPORT INFORMATION
  Report Type: 
  Country: None (occurrence: None)
  Receive Date: 20120510
  Receipt Date: 20120509
  Transmission Date: 20120825
  Serious: Yes (Other)
  Sender: FDA-Public Use
  Company Number: US-PFIZER INC-2011206245

PATIENT
  Sex: Male
  Weight: 91.723 kg

DRUGS (11)
  1. SPIRONOLACTONE [Concomitant]
     Indication: OEDEMA PERIPHERAL
     Dosage: 50 MG, UNK
     Dates: start: 20110818
  2. ALLOPURINOL [Concomitant]
     Indication: GOUT
     Dosage: 300 MG, 1X/DAY
     Dates: start: 20110907
  3. OXYBUTYNIN [Concomitant]
     Indication: HYPERTONIC BLADDER
     Dosage: 5 MG, 1X/DAY
     Route: 048
     Dates: start: 20060101
  4. PREGABALIN [Suspect]
     Indication: POST HERPETIC NEURALGIA
     Dosage: 165 MG, 1X/DAY
     Route: 048
     Dates: start: 20110804, end: 20110830
  5. ACETAMINOPHEN [Suspect]
     Indication: POST HERPETIC NEURALGIA
     Dosage: 650 MG, PRN BID
     Route: 048
     Dates: start: 20110817, end: 20110901
  6. DIPHENHYDRAMINE [Concomitant]
     Indication: PRURITUS
     Dosage: 25 MG, EVERY 6 HOURS
     Dates: start: 20110831
  7. BLINDED NO SUBJECT DRUG [Suspect]
     Indication: POST HERPETIC NEURALGIA
     Dosage: 165 MG, 1X/DAY
     Route: 048
     Dates: start: 20110804, end: 20110830
  8. LOVASTATIN [Suspect]
     Indication: HYPERLIPIDAEMIA
     Dosage: 20 MG, 1X/DAY
     Route: 048
     Dates: start: 20090101
  9. LISINOPRIL [Concomitant]
     Indication: HYPERTENSION
     Dosage: 20 MG, 1X/DAY
     Dates: start: 20040101
  10. SPIRONOLACTONE [Concomitant]
     Indication: HYPERTENSION
     Dosage: 25 MG, 1X/DAY
     Dates: start: 20110701, end: 20110818
  11. SPIRONOLACTONE [Concomitant]
     Dosage: UNK
     Dates: start: 20110701

REACTIONS (1)
  - LIVER FUNCTION TEST ABNORMAL [None]
